FAERS Safety Report 4354326-0 (Version None)
Quarter: 2004Q2

REPORT INFORMATION
  Report Type: 
  Country: None (occurrence: None)
  Receive Date: 20040503
  Receipt Date: 20040423
  Transmission Date: 20050107
  Serious: Yes (Hospitalization, Disabling)
  Sender: FDA-Public Use
  Company Number: K200301771

PATIENT
  Age: 51 Year
  Sex: Male

DRUGS (4)
  1. ALTACE [Suspect]
     Indication: MYOCARDIAL INFARCTION
     Dosage: 2.5 MG, QD,
  2. ATORVASTATIN CALCIUM [Concomitant]
  3. INSULIN [Concomitant]
  4. ASPIRIN [Concomitant]

REACTIONS (12)
  - ASCITES [None]
  - BILIARY CIRRHOSIS [None]
  - CHOLELITHIASIS [None]
  - CHOLESTASIS [None]
  - DIARRHOEA [None]
  - GASTRIC VARICES [None]
  - HAEMOGLOBIN DECREASED [None]
  - HEPATIC CIRRHOSIS [None]
  - HEPATIC FAILURE [None]
  - HEPATIC NECROSIS [None]
  - VARICES OESOPHAGEAL [None]
  - WEIGHT DECREASED [None]
